FAERS Safety Report 12707467 (Version 2)
Quarter: 2016Q3

REPORT INFORMATION
  Report Type: Report from Study
  Country: BR (occurrence: BR)
  Receive Date: 20160901
  Receipt Date: 20160902
  Transmission Date: 20161109
  Serious: Yes (Hospitalization, Other)
  Sender: FDA-Public Use
  Company Number: PHHY2016BR118453

PATIENT
  Age: 92 Year
  Sex: Female
  Weight: 63 kg

DRUGS (12)
  1. EXELON PATCH [Suspect]
     Active Substance: RIVASTIGMINE
     Indication: DEMENTIA ALZHEIMER^S TYPE
     Dosage: PATCH 5 CM2, QD
     Route: 062
     Dates: start: 200701
  2. EXELON PATCH [Suspect]
     Active Substance: RIVASTIGMINE
     Dosage: PATCH 15 CM2, QD
     Route: 062
  3. ALOIS [Concomitant]
     Active Substance: MEMANTINE
     Dosage: UNK, QD
     Route: 048
  4. QUEROPAX [Concomitant]
     Active Substance: QUETIAPINE FUMARATE
     Indication: SLEEP DISORDER
     Dosage: 25 MG, QD
     Route: 048
  5. QUEROPAX [Concomitant]
     Active Substance: QUETIAPINE FUMARATE
     Dosage: 0.5 DF (100 MG), QD
     Route: 048
  6. HEIMER [Suspect]
     Active Substance: MEMANTINE HYDROCHLORIDE
     Indication: DEMENTIA
     Dosage: UNK UNK, BID
     Route: 048
     Dates: start: 2007
  7. NEOTIAPIM [Suspect]
     Active Substance: QUETIAPINE
     Dosage: 50 MG, QD
     Route: 048
  8. DEPAKOTE [Suspect]
     Active Substance: DIVALPROEX SODIUM
     Indication: AGGRESSION
     Dosage: 0.5 DF, QD
     Route: 048
     Dates: start: 2009
  9. DEPAKOTE [Suspect]
     Active Substance: DIVALPROEX SODIUM
     Dosage: 1 DF, QD, BEFORE DINNER
     Route: 048
  10. HEIMER [Suspect]
     Active Substance: MEMANTINE HYDROCHLORIDE
     Dosage: UNK, QD
     Route: 048
  11. ALOIS [Concomitant]
     Active Substance: MEMANTINE
     Indication: DEMENTIA
     Dosage: UNK UNK, BID
     Route: 048
  12. NEOTIAPIM [Suspect]
     Active Substance: QUETIAPINE
     Dosage: 25 MG, QD
     Route: 048

REACTIONS (18)
  - Gait disturbance [Unknown]
  - Asthenia [Unknown]
  - Ischaemia [Recovering/Resolving]
  - Fatigue [Unknown]
  - Blood pressure increased [Unknown]
  - Dizziness [Unknown]
  - Headache [Unknown]
  - Muscular weakness [Unknown]
  - Emotional disorder [Unknown]
  - Aggression [Unknown]
  - Cerebrovascular accident [Unknown]
  - Screaming [Unknown]
  - Dementia [Unknown]
  - Sluggishness [Unknown]
  - Fall [Unknown]
  - Movement disorder [Unknown]
  - Agitation [Unknown]
  - Decreased appetite [Unknown]

NARRATIVE: CASE EVENT DATE: 201606
